FAERS Safety Report 9457544 (Version 1)
Quarter: 2013Q3

REPORT INFORMATION
  Report Type: Spontaneous
  Country: US (occurrence: None)
  Receive Date: 20130812
  Receipt Date: 20130812
  Transmission Date: 20140515
  Serious: No
  Sender: FDA-Public Use
  Company Number: None

PATIENT
  Age: 67 Year
  Sex: Female

DRUGS (1)
  1. CLOTRIMAZOLE [Suspect]
     Indication: TINEA PEDIS
     Dosage: APPLY 2X A DAY TWICE DAILY APPLIED TO A SURFACE USUALLY THE SKIN
     Dates: start: 20130603, end: 20130805

REACTIONS (7)
  - Nausea [None]
  - Malaise [None]
  - Dizziness [None]
  - Malaise [None]
  - Lethargy [None]
  - Vomiting [None]
  - Hyperhidrosis [None]
